FAERS Safety Report 4416496-5 (Version None)
Quarter: 2004Q3

REPORT INFORMATION
  Report Type: 
  Country: None (occurrence: None)
  Receive Date: 20040802
  Receipt Date: 20040723
  Transmission Date: 20050211
  Serious: Yes (Hospitalization)
  Sender: FDA-Public Use
  Company Number: EM2004-0383

PATIENT
  Age: 48 Year
  Sex: Male

DRUGS (1)
  1. MACROLIN [Suspect]
     Indication: HIV INFECTION
     Dosage: 4.5 MIU, BID, SUBCUTANEOUS
     Route: 058
     Dates: start: 20040517, end: 20040521

REACTIONS (2)
  - ANGIONEUROTIC OEDEMA [None]
  - PYREXIA [None]
